FAERS Safety Report 9964324 (Version 1)
Quarter: 2014Q1

REPORT INFORMATION
  Report Type: Spontaneous
  Country: US (occurrence: US)
  Receive Date: 20140305
  Receipt Date: 20140305
  Transmission Date: 20141002
  Serious: Yes (Other)
  Sender: FDA-Public Use
  Company Number: US-GLAXOSMITHKLINE-A1063328A

PATIENT
  Age: 50 Year
  Sex: Male

DRUGS (7)
  1. LAMICTAL [Suspect]
     Indication: EPILEPSY
     Dosage: 100MG UNKNOWN
     Route: 048
     Dates: start: 200202
  2. VIMPAT [Concomitant]
  3. TOPIRAMATE [Concomitant]
  4. CITALOPRAM [Concomitant]
  5. BACTRIM [Concomitant]
  6. MINOCYCLINE [Concomitant]
  7. LISINOPRIL [Concomitant]

REACTIONS (4)
  - Grand mal convulsion [Unknown]
  - Chest pain [Not Recovered/Not Resolved]
  - Angina pectoris [Not Recovered/Not Resolved]
  - Convulsion [Not Recovered/Not Resolved]
